FAERS Safety Report 9678435 (Version 2)
Quarter: 2014Q2

REPORT INFORMATION
  Report Type: Spontaneous
  Country: GB (occurrence: None)
  Receive Date: 20131106
  Receipt Date: 20140425
  Transmission Date: 20141212
  Serious: Yes (Other)
  Sender: FDA-Public Use
  Company Number: 2013MPI00674

PATIENT
  Sex: Male

DRUGS (1)
  1. ADCETRIS [Suspect]
     Indication: PRODUCT USED FOR UNKNOWN INDICATION

REACTIONS (2)
  - Ejection fraction decreased [None]
  - Pleural effusion [None]
